FAERS Safety Report 8496700-7 (Version None)
Quarter: 2012Q3

REPORT INFORMATION
  Report Type: 
  Country: None (occurrence: None)
  Receive Date: 20120709
  Receipt Date: 20120625
  Transmission Date: 20120928
  Serious: Yes (Other)
  Sender: FDA-Public Use
  Company Number: US-ENDO PHARMACEUTICALS INC.-OPCR20121489

PATIENT
  Sex: Male

DRUGS (4)
  1. OPANA ER [Concomitant]
     Dosage: UNKNOWN
     Route: 048
     Dates: end: 20120401
  2. OPANA ER [Suspect]
     Indication: BACK PAIN
     Dosage: UNKNOWN
     Route: 048
     Dates: start: 20120401, end: 20120501
  3. OPANA ER [Suspect]
     Indication: ROAD TRAFFIC ACCIDENT
     Dosage: UNKNOWN
     Route: 048
     Dates: start: 20120601
  4. OPANA ER [Concomitant]

REACTIONS (3)
  - VOMITING [None]
  - INTENTIONAL DRUG MISUSE [None]
  - DRUG INEFFECTIVE [None]
